FAERS Safety Report 25364374 (Version 3)
Quarter: 2025Q2

REPORT INFORMATION
  Report Type: Spontaneous
  Country: CA (occurrence: CA)
  Receive Date: 20250527
  Receipt Date: 20250613
  Transmission Date: 20250716
  Serious: Yes (Other)
  Sender: PFIZER
  Company Number: CA-PFIZER INC-202500108342

PATIENT
  Age: 38 Year
  Sex: Female
  Weight: 73 kg

DRUGS (8)
  1. RUXIENCE [Suspect]
     Active Substance: RITUXIMAB-PVVR
     Indication: Pemphigus
     Route: 042
     Dates: start: 20240321, end: 20240404
  2. RUXIENCE [Suspect]
     Active Substance: RITUXIMAB-PVVR
     Indication: Pemphigoid
     Route: 042
     Dates: start: 20241122, end: 20241122
  3. RUXIENCE [Suspect]
     Active Substance: RITUXIMAB-PVVR
     Route: 042
     Dates: start: 20250522, end: 20250522
  4. ASCORBIC ACID [Concomitant]
     Active Substance: ASCORBIC ACID
  5. NYSTATIN [Concomitant]
     Active Substance: NYSTATIN
  6. PREDNISONE [Concomitant]
     Active Substance: PREDNISONE
  7. SODIUM BICARBONATE [Concomitant]
     Active Substance: SODIUM BICARBONATE
  8. ZINC [Concomitant]
     Active Substance: ZINC

REACTIONS (7)
  - Cough [Recovering/Resolving]
  - Sneezing [Recovering/Resolving]
  - Ear pruritus [Recovered/Resolved]
  - Throat tightness [Recovered/Resolved]
  - Dysphonia [Recovering/Resolving]
  - Erythema [Recovering/Resolving]
  - Nasal obstruction [Recovered/Resolved]

NARRATIVE: CASE EVENT DATE: 20250522
